FAERS Safety Report 6311894-7 (Version None)
Quarter: 2009Q3

REPORT INFORMATION
  Report Type: 
  Country: None (occurrence: None)
  Receive Date: 20090817
  Receipt Date: 20090306
  Transmission Date: 20100115
  Serious: No
  Sender: FDA-Public Use
  Company Number: US-B.I. PHARMACEUTICALS,INC./RIDGEFIELD-2009-BP-09632BP

PATIENT

DRUGS (2)
  1. MIRAPEX [Suspect]
     Indication: RESTLESS LEGS SYNDROME
     Dosage: 0.5 MG
     Route: 048
  2. KLONOPIN [Concomitant]

REACTIONS (3)
  - INSOMNIA [None]
  - NOCTURIA [None]
  - THERAPEUTIC RESPONSE DECREASED [None]
